FAERS Safety Report 10568507 (Version 3)
Quarter: 2014Q4

REPORT INFORMATION
  Report Type: Spontaneous
  Country: US (occurrence: US)
  Receive Date: 20141106
  Receipt Date: 20141110
  Transmission Date: 20150529
  Serious: Yes (Hospitalization)
  Sender: FDA-Public Use
  Company Number: US-ACTELION-A-US2014-106361

PATIENT
  Age: 47 Year
  Sex: Female

DRUGS (2)
  1. VELETRI [Suspect]
     Active Substance: EPOPROSTENOL
     Indication: PULMONARY ARTERIAL HYPERTENSION
     Dosage: 35 NG/KG, PER MIN
     Route: 042
     Dates: start: 20130327
  2. REVATIO [Concomitant]
     Active Substance: SILDENAFIL CITRATE

REACTIONS (9)
  - Vomiting [Unknown]
  - Blood culture negative [Unknown]
  - Diarrhoea [Unknown]
  - Central venous catheterisation [Unknown]
  - Nausea [Unknown]
  - Drug dose omission [Unknown]
  - Intentional medical device removal by patient [Unknown]
  - Device related infection [Unknown]
  - Body temperature increased [Unknown]
